FAERS Safety Report 5298041-8 (Version None)
Quarter: 2007Q1

REPORT INFORMATION
  Report Type: 
  Country: None (occurrence: None)
  Receive Date: 20070201
  Receipt Date: 20061101
  Transmission Date: 20070707
  Serious: No
  Sender: FDA-Public Use
  Company Number: 2006PV024372

PATIENT
  Age: 57 Year
  Sex: Female

DRUGS (10)
  1. BYETTA [Suspect]
     Indication: DIABETES MELLITUS NON-INSULIN-DEPENDENT
     Dosage: 5 MCG;BID
     Dates: start: 20051027, end: 20060901
  2. LANTUS [Concomitant]
  3. HUMALOG [Concomitant]
  4. AVANDIA [Concomitant]
  5. MAXZIDE [Concomitant]
  6. ACCUPRIL [Concomitant]
  7. ATENOLOL [Concomitant]
  8. LIPITOR [Concomitant]
  9. CALCIUM CHLORIDE [Concomitant]
  10. LASIX [Concomitant]

REACTIONS (2)
  - BONE MARROW FAILURE [None]
  - WEIGHT DECREASED [None]
